FAERS Safety Report 5120248-0 (Version None)
Quarter: 2006Q4

REPORT INFORMATION
  Report Type: 
  Country: None (occurrence: None)
  Receive Date: 20061004
  Receipt Date: 20060921
  Transmission Date: 20070319
  Serious: Yes (Death, Other)
  Sender: FDA-Public Use
  Company Number: DEWYE979621SEP06

PATIENT
  Sex: Female
  Weight: 60 kg

DRUGS (2)
  1. ENBREL [Suspect]
     Indication: PSORIASIS
     Route: 058
     Dates: start: 20060713
  2. AVACORE [Suspect]
     Route: 042
     Dates: start: 20060819, end: 20060820

REACTIONS (4)
  - CARDIOVASCULAR INSUFFICIENCY [None]
  - DEATH [None]
  - INFECTION [None]
  - SYNCOPE [None]
